FAERS Safety Report 16807638 (Version 1)
Quarter: 2019Q3

REPORT INFORMATION
  Report Type: Spontaneous
  Country: NO (occurrence: NO)
  Receive Date: 20190914
  Receipt Date: 20190914
  Transmission Date: 20191005
  Serious: Yes (Other)
  Sender: FDA-Public Use
  Company Number: NO-ROCHE-2406410

PATIENT
  Age: 80 Year
  Sex: Male

DRUGS (2)
  1. DIAZEPAM. [Suspect]
     Active Substance: DIAZEPAM
     Route: 030
  2. DIAZEPAM. [Suspect]
     Active Substance: DIAZEPAM
     Indication: SPINAL ANAESTHESIA
     Route: 042

REACTIONS (4)
  - Apnoea [Unknown]
  - Loss of consciousness [Unknown]
  - Cyanosis [Unknown]
  - Pulse abnormal [Unknown]
